FAERS Safety Report 18349843 (Version 1)
Quarter: 2020Q4

REPORT INFORMATION
  Report Type: Spontaneous
  Country: US (occurrence: US)
  Receive Date: 20201006
  Receipt Date: 20201006
  Transmission Date: 20210114
  Serious: Yes (Other)
  Sender: FDA-Public Use
  Company Number: US-OXFORD PHARMACEUTICALS, LLC-2020OXF00123

PATIENT
  Sex: Female

DRUGS (8)
  1. ZOLOFT [Suspect]
     Active Substance: SERTRALINE HYDROCHLORIDE
  2. VICODIN [Suspect]
     Active Substance: ACETAMINOPHEN\HYDROCODONE BITARTRATE
  3. BUSPAR [Suspect]
     Active Substance: BUSPIRONE HYDROCHLORIDE
  4. METHOCARBAMOL. [Suspect]
     Active Substance: METHOCARBAMOL
  5. ULTRAM [Suspect]
     Active Substance: TRAMADOL HYDROCHLORIDE
  6. GABAPENTIN. [Suspect]
     Active Substance: GABAPENTIN
  7. CYCLOBENZAPRINE. [Suspect]
     Active Substance: CYCLOBENZAPRINE
     Dosage: UNK
  8. XANAX [Suspect]
     Active Substance: ALPRAZOLAM

REACTIONS (5)
  - Dependence [Unknown]
  - Apathy [Unknown]
  - Quality of life decreased [Unknown]
  - Oxygen saturation decreased [Unknown]
  - Decreased activity [Unknown]
